FAERS Safety Report 4368346-3 (Version None)
Quarter: 2004Q2

REPORT INFORMATION
  Report Type: 
  Country: None (occurrence: None)
  Receive Date: 20040525
  Receipt Date: 20040513
  Transmission Date: 20050107
  Serious: Yes (Hospitalization)
  Sender: FDA-Public Use
  Company Number: HQWYE872913MAY04

PATIENT
  Age: 3 Year
  Sex: Male

DRUGS (3)
  1. CHILDREN'S ADVIL [Suspect]
     Indication: PYREXIA
     Dosage: UNKNOWN DOSE THREE TIMES DAILY ORAL
     Route: 048
     Dates: start: 20040405, end: 20040406
  2. ACETAMINOPHEN [Concomitant]
  3. ACETAMINOPHEN [Concomitant]

REACTIONS (3)
  - CELLULITIS [None]
  - HYPERTHERMIA [None]
  - SKIN NECROSIS [None]
